FAERS Safety Report 10395566 (Version 1)
Quarter: 2014Q3

REPORT INFORMATION
  Report Type: Spontaneous
  Country: US (occurrence: CA)
  Receive Date: 20140820
  Receipt Date: 20140820
  Transmission Date: 20150326
  Serious: Yes (Hospitalization)
  Sender: FDA-Public Use
  Company Number: 2014SP004815

PATIENT
  Age: 61 Year
  Sex: Female

DRUGS (10)
  1. MOBICOX [Concomitant]
     Active Substance: MELOXICAM
  2. ATIVAN [Concomitant]
     Active Substance: LORAZEPAM
  3. CITALOPRAM HYDROBROMIDE. [Concomitant]
     Active Substance: CITALOPRAM HYDROBROMIDE
  4. ERGOCALCIFEROL. [Concomitant]
     Active Substance: ERGOCALCIFEROL
  5. TOCOPHEROL [Concomitant]
     Active Substance: TOCOPHEROL
  6. METHOTREXATE [Suspect]
     Active Substance: METHOTREXATE
     Indication: PRODUCT USED FOR UNKNOWN INDICATION
  7. HYDROXYCHLOROQUINE PHOSPHATE [Concomitant]
  8. ENBREL [Suspect]
     Active Substance: ETANERCEPT
     Indication: PRODUCT USED FOR UNKNOWN INDICATION
  9. ASCORBIC ACID. [Concomitant]
     Active Substance: ASCORBIC ACID
  10. CALCIUM CHLORIDE. [Concomitant]
     Active Substance: CALCIUM CHLORIDE

REACTIONS (5)
  - Rheumatoid arthritis [Unknown]
  - Burning sensation [Unknown]
  - Injection related reaction [Unknown]
  - Stomatitis [Unknown]
  - Pyrexia [Unknown]
